FAERS Safety Report 14908690 (Version 2)
Quarter: 2018Q2

REPORT INFORMATION
  Report Type: Report from Study
  Country: US (occurrence: US)
  Receive Date: 20180517
  Receipt Date: 20180601
  Transmission Date: 20180711
  Serious: Yes (Death, Other)
  Sender: FDA-Public Use
  Company Number: US-RETROPHIN, INC.-2018RTN00017

PATIENT
  Age: 7 Month
  Sex: Female
  Weight: 8.64 kg

DRUGS (11)
  1. CHOLIC ACID [Suspect]
     Active Substance: CHOLIC ACID
     Indication: CEREBROHEPATORENAL SYNDROME
     Dosage: 50 MG, 1X/DAY
     Route: 048
     Dates: start: 20170913
  2. LEVETIRACETAM. [Concomitant]
     Active Substance: LEVETIRACETAM
     Dosage: 5 ML, 2X/DAY AT 1100 AND 2300
     Route: 048
  3. BANZEL [Concomitant]
     Active Substance: RUFINAMIDE
     Dosage: 2 ML, 2X/DAY AT 0800 AND 2000
     Route: 048
  4. PHENOBARBITAL. [Concomitant]
     Active Substance: PHENOBARBITAL
     Dosage: 6 ML, 2X/DAY AT 5AM AND 5PM
     Route: 048
  5. IBUPROFEN. [Concomitant]
     Active Substance: IBUPROFEN
  6. CHOLIC ACID [Suspect]
     Active Substance: CHOLIC ACID
     Dosage: 50 MG, 2X/DAY
     Route: 048
     Dates: end: 20180504
  7. CLONAZEPAM. [Concomitant]
     Active Substance: CLONAZEPAM
     Dosage: 0.5 MG, 3X/DAY
     Route: 048
  8. CLONAZEPAM. [Concomitant]
     Active Substance: CLONAZEPAM
     Dosage: 0.25 MG, 1X/DAY AS NEEDED
     Route: 048
  9. VITAMIN B12 [Concomitant]
     Active Substance: CYANOCOBALAMIN
     Dosage: 50 ?G, UNK
     Route: 048
  10. RANITIDINE. [Concomitant]
     Active Substance: RANITIDINE
     Dosage: 0.9 ML, 2X/DAY
     Route: 048
  11. ALBUTEROL SULFATE. [Concomitant]
     Active Substance: ALBUTEROL SULFATE
     Dosage: UNK, UP TO 4X/DAY
     Route: 055

REACTIONS (2)
  - Seizure [Fatal]
  - Pneumonia staphylococcal [Unknown]

NARRATIVE: CASE EVENT DATE: 20180329
